FAERS Safety Report 18758282 (Version 1)
Quarter: 2021Q1

REPORT INFORMATION
  Report Type: Spontaneous
  Country: BG (occurrence: BG)
  Receive Date: 20210120
  Receipt Date: 20210120
  Transmission Date: 20210419
  Serious: Yes (Other)
  Sender: FDA-Public Use
  Company Number: BG-LUPIN PHARMACEUTICALS INC.-2021-00257

PATIENT
  Age: 15 Year
  Sex: Male

DRUGS (2)
  1. COLISTIN [Suspect]
     Active Substance: COLISTIN
     Indication: ACHROMOBACTER INFECTION
     Dosage: UNK
  2. SULFAMETHOXAZOLE AND TRIMETHOPRIM [Suspect]
     Active Substance: SULFAMETHOXAZOLE\TRIMETHOPRIM
     Indication: ACHROMOBACTER INFECTION
     Dosage: UNK
     Route: 065

REACTIONS (1)
  - Pathogen resistance [Unknown]
